FAERS Safety Report 14839453 (Version 3)
Quarter: 2018Q3

REPORT INFORMATION
  Report Type: Report from Study
  Country: CZ (occurrence: CZ)
  Receive Date: 20180502
  Receipt Date: 20180808
  Transmission Date: 20181010
  Serious: Yes (Other)
  Sender: FDA-Public Use
  Company Number: CZ-TEVA-2018-CZ-886648

PATIENT
  Age: 58 Year
  Sex: Male

DRUGS (21)
  1. 5 FU [Suspect]
     Active Substance: FLUOROURACIL
     Indication: COLORECTAL CANCER METASTATIC
     Route: 042
     Dates: start: 20141124, end: 20141124
  2. 5 FU [Suspect]
     Active Substance: FLUOROURACIL
     Route: 040
     Dates: start: 20141124, end: 20141124
  3. AFLIBERCEPT [Suspect]
     Active Substance: AFLIBERCEPT
     Route: 041
     Dates: start: 20141124, end: 20141124
  4. ATROPIN [Concomitant]
     Active Substance: ATROPINE
     Indication: PROPHYLAXIS
     Route: 065
     Dates: start: 20141208, end: 20141208
  5. ZOLSANA [Concomitant]
     Route: 065
     Dates: start: 201403
  6. LEVOLEUCOVORIN. [Suspect]
     Active Substance: LEVOLEUCOVORIN
     Indication: COLORECTAL CANCER METASTATIC
     Route: 041
     Dates: start: 20171124, end: 20171124
  7. QUAMATEL [Concomitant]
     Active Substance: FAMOTIDINE
     Route: 065
     Dates: start: 20141208, end: 20141208
  8. QUAMATEL [Concomitant]
     Active Substance: FAMOTIDINE
     Route: 065
     Dates: start: 20141124, end: 20141124
  9. IRINOTECAN [Suspect]
     Active Substance: IRINOTECAN
     Route: 041
     Dates: start: 20141110, end: 20141110
  10. 5 FU [Suspect]
     Active Substance: FLUOROURACIL
     Route: 042
     Dates: start: 20141110, end: 20141110
  11. LEVOLEUCOVORIN. [Suspect]
     Active Substance: LEVOLEUCOVORIN
     Route: 041
     Dates: start: 20171110, end: 20171110
  12. ATROPIN [Concomitant]
     Active Substance: ATROPINE
     Route: 065
     Dates: start: 20141110, end: 20141110
  13. ATROPIN [Concomitant]
     Active Substance: ATROPINE
     Route: 065
     Dates: start: 20141124, end: 20141124
  14. AFLIBERCEPT [Suspect]
     Active Substance: AFLIBERCEPT
     Indication: COLORECTAL CANCER METASTATIC
     Route: 041
     Dates: start: 20141110, end: 20141110
  15. KALII CHLORIDUM [Concomitant]
     Indication: PROPHYLAXIS
     Route: 065
     Dates: start: 201407, end: 20141119
  16. QUAMATEL [Concomitant]
     Active Substance: FAMOTIDINE
     Indication: PROPHYLAXIS
     Route: 065
     Dates: start: 20141110, end: 20141110
  17. APAURIN [Concomitant]
     Active Substance: DIAZEPAM
     Indication: PROPHYLAXIS
     Route: 065
     Dates: start: 20141110, end: 20141110
  18. APAURIN [Concomitant]
     Active Substance: DIAZEPAM
     Route: 065
     Dates: start: 20141124, end: 20141124
  19. IRINOTECAN [Suspect]
     Active Substance: IRINOTECAN
     Indication: COLORECTAL CANCER METASTATIC
     Route: 041
     Dates: start: 20141124, end: 20141124
  20. 5 FU [Suspect]
     Active Substance: FLUOROURACIL
     Route: 040
     Dates: start: 20141110, end: 20141110
  21. KALII CHLORIDUM [Concomitant]
     Route: 065
     Dates: start: 20141120

REACTIONS (3)
  - Hypertension [Recovered/Resolved]
  - Neutropenia [Recovered/Resolved]
  - Off label use [Unknown]

NARRATIVE: CASE EVENT DATE: 20141124
